FAERS Safety Report 5503885-0 (Version None)
Quarter: 2007Q4

REPORT INFORMATION
  Report Type: 
  Country: None (occurrence: None)
  Receive Date: 20071030
  Receipt Date: 20071030
  Transmission Date: 20080405
  Serious: Yes (Other)
  Sender: FDA-Public Use
  Company Number: None

PATIENT
  Age: 58 Year
  Sex: Female
  Weight: 55.7924 kg

DRUGS (1)
  1. GENTEAL GEL [Suspect]
     Indication: DRY EYE
     Dosage: 1 TO 2 DROPS PER EYE AS NEEDED INTRAOCULAR
     Route: 031
     Dates: start: 20071022, end: 20071027

REACTIONS (1)
  - DRUG HYPERSENSITIVITY [None]
